FAERS Safety Report 4818250-9 (Version None)
Quarter: 2005Q4

REPORT INFORMATION
  Report Type: 
  Country: None (occurrence: None)
  Receive Date: 20051102
  Receipt Date: 20051026
  Transmission Date: 20060501
  Serious: Yes (Hospitalization, Other)
  Sender: FDA-Public Use
  Company Number: AU-AVENTIS-200519490GDDC

PATIENT
  Age: 80 Year
  Sex: Female

DRUGS (3)
  1. ARAVA [Suspect]
     Indication: RHEUMATOID ARTHRITIS
     Dosage: DOSE: UNK
     Route: 048
     Dates: start: 20051019
  2. METHOTREXATE [Concomitant]
     Dosage: DOSE: UNK
  3. FOSAMAX [Concomitant]
     Dosage: DOSE: UNK

REACTIONS (1)
  - DEHYDRATION [None]
